FAERS Safety Report 5508500-8 (Version None)
Quarter: 2007Q4

REPORT INFORMATION
  Report Type: 
  Country: None (occurrence: None)
  Receive Date: 20071105
  Receipt Date: 20071029
  Transmission Date: 20080405
  Serious: Yes (Hospitalization)
  Sender: FDA-Public Use
  Company Number: 2007SP021912

PATIENT
  Age: 67 Year
  Sex: Male
  Weight: 83.6 kg

DRUGS (2)
  1. TEMOZOLOMIDE [Suspect]
     Indication: GLIOBLASTOMA MULTIFORME
     Dosage: 75 MG/M2; ; PO
     Route: 048
     Dates: start: 20070524
  2. BEVACIZUMAB [Suspect]
     Indication: GLIOBLASTOMA MULTIFORME
     Dosage: 10 MG/KG; ; IV
     Route: 042
     Dates: start: 20070524

REACTIONS (3)
  - BENIGN PROSTATIC HYPERPLASIA [None]
  - HAEMATEMESIS [None]
  - IDIOPATHIC THROMBOCYTOPENIC PURPURA [None]
